FAERS Safety Report 12903659 (Version 2)
Quarter: 2016Q4

REPORT INFORMATION
  Report Type: Spontaneous
  Country: DE (occurrence: DE)
  Receive Date: 20161102
  Receipt Date: 20161114
  Transmission Date: 20170207
  Serious: Yes (Other)
  Sender: FDA-Public Use
  Company Number: PHHY2016DE148603

PATIENT
  Age: 35 Year
  Sex: Female
  Weight: 62 kg

DRUGS (3)
  1. FONDAPARIN [Concomitant]
     Indication: ANTICOAGULANT THERAPY
     Route: 065
  2. ZYKADIA [Suspect]
     Active Substance: CERITINIB
     Indication: NON-SMALL CELL LUNG CANCER
     Dosage: 750 MG, QD
     Route: 065
     Dates: start: 201508
  3. DEXAMETHASONE. [Concomitant]
     Active Substance: DEXAMETHASONE
     Indication: HEADACHE
     Dosage: UNK
     Route: 065
     Dates: end: 201610

REACTIONS (5)
  - Pleural effusion [Unknown]
  - Central nervous system lesion [Unknown]
  - Dizziness [Unknown]
  - Metastases to central nervous system [Unknown]
  - Brain oedema [Unknown]

NARRATIVE: CASE EVENT DATE: 201508
